FAERS Safety Report 19065856 (Version 1)
Quarter: 2021Q1

REPORT INFORMATION
  Report Type: Spontaneous
  Country: CA (occurrence: CA)
  Receive Date: 20210327
  Receipt Date: 20210327
  Transmission Date: 20210420
  Serious: Yes (Death)
  Sender: FDA-Public Use
  Company Number: CA-IPSEN BIOPHARMACEUTICALS, INC.-2021-07857

PATIENT
  Age: 87 Year
  Sex: Male

DRUGS (20)
  1. SOMATULINE AUTOGEL [Suspect]
     Active Substance: LANREOTIDE ACETATE
     Indication: PRODUCT USED FOR UNKNOWN INDICATION
     Route: 051
  2. SANDOZ EYELUBE [Concomitant]
     Route: 047
  3. TRAZODONE [Concomitant]
     Active Substance: TRAZODONE HYDROCHLORIDE
  4. FRAGMIN [Concomitant]
     Active Substance: DALTEPARIN SODIUM
     Route: 042
  5. MORPHINE [Concomitant]
     Active Substance: MORPHINE
  6. ZINC OXIDE. [Concomitant]
     Active Substance: ZINC OXIDE
  7. ACIDOPHILUS [Concomitant]
     Active Substance: LACTOBACILLUS ACIDOPHILUS
  8. CHOLESTYRAMINE. [Concomitant]
     Active Substance: CHOLESTYRAMINE
  9. GABAPENTIN. [Concomitant]
     Active Substance: GABAPENTIN
  10. RABEPRAZOLE [Concomitant]
     Active Substance: RABEPRAZOLE
  11. TAMSULOSIN [Concomitant]
     Active Substance: TAMSULOSIN
  12. ACETAMINOPHEN. [Concomitant]
     Active Substance: ACETAMINOPHEN
  13. METAMUCIL [Concomitant]
     Active Substance: PLANTAGO SEED
  14. ARTIFICIAL TEARS [Concomitant]
     Active Substance: GLYCERIN\HYPROMELLOSES\POLYETHYLENE GLYCOL 400
  15. LAXATIVES [Concomitant]
     Active Substance: UNSPECIFIED INGREDIENT
  16. ALMAGEL [Concomitant]
  17. M?ESLON [Concomitant]
     Active Substance: MORPHINE SULFATE
  18. FUROSEMIDE. [Concomitant]
     Active Substance: FUROSEMIDE
  19. LOPERAMIDE [Concomitant]
     Active Substance: LOPERAMIDE
  20. UREMOL [Concomitant]
     Active Substance: UREA

REACTIONS (3)
  - Livedo reticularis [Fatal]
  - Eye movement disorder [Fatal]
  - Hypoglycaemia [Fatal]
